FAERS Safety Report 10155212 (Version 1)
Quarter: 2014Q2

REPORT INFORMATION
  Report Type: Spontaneous
  Country: US (occurrence: US)
  Receive Date: 20140506
  Receipt Date: 20140506
  Transmission Date: 20141212
  Serious: Yes (Death, Hospitalization)
  Sender: FDA-Public Use
  Company Number: US-ACTAVIS-2014-09186

PATIENT
  Age: 48 Year
  Sex: Male

DRUGS (4)
  1. MYCOPHENOLATE MOFETIL (UNKNOWN) [Suspect]
     Indication: TRANSPLANT REJECTION
     Dosage: 1000 MG, BID
     Route: 065
  2. TACROLIMUS (WATSON LABORATORIES) [Suspect]
     Indication: TRANSPLANT REJECTION
     Dosage: 1 MG, BID
     Route: 065
  3. PREDNISONE (WATSON LABORATORIES) [Suspect]
     Indication: TRANSPLANT REJECTION
     Dosage: 20 MG, DAILY
     Route: 065
  4. RITUXIMAB [Suspect]
     Indication: TRANSPLANT REJECTION
     Dosage: 780 MG, UNKNOWN, 4 CYCLES
     Route: 065

REACTIONS (1)
  - Progressive multifocal leukoencephalopathy [Fatal]
